FAERS Safety Report 12985588 (Version 1)
Quarter: 2016Q4

REPORT INFORMATION
  Report Type: Other
  Country: JP (occurrence: JP)
  Receive Date: 20161130
  Receipt Date: 20161130
  Transmission Date: 20170207
  Serious: Yes (Death, Hospitalization)
  Sender: FDA-Public Use
  Company Number: JP-ACTELION-A-CH2016-146118

PATIENT
  Age: 2 Year
  Sex: Male
  Weight: 11 kg

DRUGS (4)
  1. ADRENALINE [Concomitant]
     Active Substance: EPINEPHRINE
     Indication: PULMONARY ARTERIAL HYPERTENSION
  2. DOBUTAMINE [Concomitant]
     Active Substance: DOBUTAMINE\DOBUTAMINE HYDROCHLORIDE
     Indication: PULMONARY ARTERIAL HYPERTENSION
  3. NITRIC OXIDE. [Concomitant]
     Active Substance: NITRIC OXIDE
     Indication: PULMONARY ARTERIAL HYPERTENSION
     Route: 055
  4. EPOPROSTENOL SODIUM. [Suspect]
     Active Substance: EPOPROSTENOL SODIUM
     Indication: PULMONARY ARTERIAL HYPERTENSION
     Route: 042

REACTIONS (8)
  - Brain stem haemorrhage [Fatal]
  - Extracorporeal membrane oxygenation [Unknown]
  - Pulmonary haemorrhage [Fatal]
  - Cerebral atrophy [Fatal]
  - Therapy non-responder [Unknown]
  - Balloon atrial septostomy [Unknown]
  - Pulmonary hypertensive crisis [Fatal]
  - Bradycardia [Fatal]
